FAERS Safety Report 9999868 (Version 1)
Quarter: 2014Q1

REPORT INFORMATION
  Report Type: Spontaneous
  Country: US (occurrence: None)
  Receive Date: 20140228
  Receipt Date: 20140228
  Transmission Date: 20141002
  Serious: Yes (Hospitalization)
  Sender: FDA-Public Use
  Company Number: PHEH2012US025678

PATIENT
  Age: 75 Year
  Sex: Male

DRUGS (1)
  1. SANDIMMUNE [Suspect]
     Indication: RENAL TRANSPLANT
     Dosage: 50 MG, IN THE MORNING AT AM
     Route: 048
     Dates: start: 1986

REACTIONS (3)
  - Staphylococcal infection [None]
  - Memory impairment [None]
  - Influenza [None]
